FAERS Safety Report 8569759-6 (Version None)
Quarter: 2012Q3

REPORT INFORMATION
  Report Type: 
  Country: None (occurrence: None)
  Receive Date: 20120803
  Receipt Date: 20120619
  Transmission Date: 20120928
  Serious: No
  Sender: FDA-Public Use
  Company Number: US-ABBOTT-12P-163-0947958-00

PATIENT
  Sex: Male
  Weight: 131.66 kg

DRUGS (3)
  1. UNKNOWN ANXIETY MEDICATION [Concomitant]
     Indication: ANXIETY
  2. UNKNOWN DIABETES MEDICATION [Concomitant]
     Indication: DIABETES MELLITUS
  3. NIASPAN [Suspect]
     Indication: HIGH DENSITY LIPOPROTEIN DECREASED

REACTIONS (1)
  - FLUSHING [None]
